FAERS Safety Report 10378009 (Version 2)
Quarter: 2014Q3

REPORT INFORMATION
  Report Type: Spontaneous
  Country: DE (occurrence: None)
  Receive Date: 20140807
  Receipt Date: 20140812
  Transmission Date: 20150326
  Serious: Yes (Congenital Anomaly, Other)
  Sender: FDA-Public Use
  Company Number: AUR-APL-2014-08271

PATIENT
  Age: 1 Day
  Sex: Male
  Weight: 3.5 kg

DRUGS (7)
  1. METFORMIN [Suspect]
     Active Substance: METFORMIN HYDROCHLORIDE
     Indication: INSULIN RESISTANCE
     Route: 064
     Dates: start: 20121005, end: 20130627
  2. FEMIBION [Suspect]
     Active Substance: VITAMINS
     Indication: PROPHYLAXIS OF NEURAL TUBE DEFECT
     Route: 064
     Dates: start: 20121005, end: 20130327
  3. NSULIN NOS [Suspect]
     Active Substance: INSULIN NOS
     Indication: GESTATIONAL DIABETES
     Route: 064
     Dates: start: 20130327, end: 20130327
  4. METFORMIN [Suspect]
     Active Substance: METFORMIN HYDROCHLORIDE
     Indication: POLYCYSTIC OVARIES
     Route: 064
     Dates: start: 20121005, end: 20130627
  5. VIGANTOLETTEN [Suspect]
     Active Substance: CHOLECALCIFEROL
     Indication: VITAMIN D DEFICIENCY
     Route: 064
     Dates: start: 20121005, end: 20130627
  6. COLECALCIFEROL [Concomitant]
     Active Substance: CHOLECALCIFEROL
  7. RENNIE [Suspect]
     Active Substance: MAGNESIUM CARBONATE
     Indication: DYSPEPSIA
     Route: 064
     Dates: end: 20130627

REACTIONS (5)
  - Eyelid ptosis congenital [None]
  - Caesarean section [None]
  - Ultrasound Doppler abnormal [None]
  - Maternal drugs affecting foetus [None]
  - Off label use [None]

NARRATIVE: CASE EVENT DATE: 20130628
